FAERS Safety Report 10648182 (Version 1)
Quarter: 2014Q4

REPORT INFORMATION
  Report Type: Spontaneous
  Country: US (occurrence: None)
  Receive Date: 20141211
  Receipt Date: 20141211
  Transmission Date: 20150529
  Serious: No
  Sender: FDA-Public Use
  Company Number: None

PATIENT
  Age: 67 Year
  Sex: Female

DRUGS (3)
  1. VANCOMYCIN [Suspect]
     Active Substance: VANCOMYCIN
     Indication: INCISIONAL DRAINAGE
     Route: 042
     Dates: start: 20141118, end: 20141118
  2. CEFTRIAXONE. [Concomitant]
     Active Substance: CEFTRIAXONE
  3. VANCOMYCIN [Concomitant]
     Active Substance: VANCOMYCIN

REACTIONS (2)
  - Pruritus [None]
  - Rubber sensitivity [None]

NARRATIVE: CASE EVENT DATE: 20141118
